FAERS Safety Report 14282046 (Version 1)
Quarter: 2017Q4

REPORT INFORMATION
  Report Type: Spontaneous
  Country: US (occurrence: US)
  Receive Date: 20171213
  Receipt Date: 20171213
  Transmission Date: 20180321
  Serious: Yes (Hospitalization)
  Sender: FDA-Public Use
  Company Number: US-PFIZER INC-2017527165

PATIENT
  Age: 80 Year
  Sex: Male
  Weight: 73 kg

DRUGS (1)
  1. ATROPINE SULFATE/DIPHENOXYLATE HYDROCHLORIDE [Suspect]
     Active Substance: ATROPINE SULFATE\DIPHENOXYLATE HYDROCHLORIDE
     Indication: DIARRHOEA
     Dosage: UNK
     Dates: start: 201702, end: 201702

REACTIONS (3)
  - Dysuria [Recovered/Resolved]
  - Product use issue [None]
  - Abdominal distension [Recovered/Resolved]

NARRATIVE: CASE EVENT DATE: 201702
